FAERS Safety Report 6435239-7 (Version None)
Quarter: 2009Q4

REPORT INFORMATION
  Report Type: 
  Country: None (occurrence: None)
  Receive Date: 20091110
  Receipt Date: 20090925
  Transmission Date: 20100525
  Serious: No
  Sender: FDA-Public Use
  Company Number: US-ABBOTT-09P-163-0599961-00

PATIENT
  Age: 72 Year
  Sex: Male

DRUGS (1)
  1. TARKA [Suspect]
     Indication: HYPERTENSION

REACTIONS (1)
  - DRUG INEFFECTIVE [None]
